FAERS Safety Report 9384277 (Version 1)
Quarter: 2013Q3

REPORT INFORMATION
  Report Type: Report from Study
  Country: ID (occurrence: ID)
  Receive Date: 20130705
  Receipt Date: 20130705
  Transmission Date: 20140515
  Serious: Yes (Death, Other)
  Sender: FDA-Public Use
  Company Number: ID-ROCHE-1245232

PATIENT
  Age: 69 Year
  Sex: Male
  Weight: 50 kg

DRUGS (4)
  1. AVASTIN [Suspect]
     Indication: COLORECTAL CANCER METASTATIC
     Route: 041
     Dates: start: 20130513
  2. OXALIPLATIN [Concomitant]
     Indication: COLORECTAL CANCER METASTATIC
  3. LEUCOVORIN [Concomitant]
     Indication: COLORECTAL CANCER METASTATIC
  4. 5-FU [Concomitant]
     Indication: COLORECTAL CANCER METASTATIC

REACTIONS (4)
  - Hypotension [Fatal]
  - Dyspnoea [Fatal]
  - Anaemia [Unknown]
  - Abdominal pain [Unknown]
